FAERS Safety Report 8549964-5 (Version None)
Quarter: 2012Q3

REPORT INFORMATION
  Report Type: 
  Country: None (occurrence: None)
  Receive Date: 20120730
  Receipt Date: 20120720
  Transmission Date: 20120928
  Serious: Yes (Hospitalization)
  Sender: FDA-Public Use
  Company Number: US-BAYER-2012-031654

PATIENT
  Age: 31 Year
  Sex: Female
  Weight: 44.898 kg

DRUGS (2)
  1. YASMIN [Suspect]
     Indication: ACNE
     Dosage: UNK
     Dates: start: 20030101, end: 20060101
  2. YAZ [Suspect]
     Indication: ACNE
     Dosage: UNK
     Dates: start: 20030101, end: 20060101

REACTIONS (2)
  - PULMONARY EMBOLISM [None]
  - PAIN [None]
